FAERS Safety Report 5211916-0 (Version None)
Quarter: 2007Q1

REPORT INFORMATION
  Report Type: 
  Country: None (occurrence: None)
  Receive Date: 20070118
  Receipt Date: 20070102
  Transmission Date: 20070707
  Serious: Yes (Disabling)
  Sender: FDA-Public Use
  Company Number: 2006CG01056

PATIENT
  Age: 75 Year
  Sex: Male
  Weight: 66 kg

DRUGS (9)
  1. CRESTOR [Suspect]
     Indication: HYPERCHOLESTEROLAEMIA
     Route: 048
     Dates: start: 20060401, end: 20060101
  2. CRESTOR [Suspect]
     Route: 048
     Dates: start: 20060101, end: 20060701
  3. VASTEN [Suspect]
     Indication: HYPERCHOLESTEROLAEMIA
     Route: 048
     Dates: start: 20020101, end: 20060401
  4. CORDARONE [Concomitant]
     Indication: ATRIAL FIBRILLATION
     Route: 048
     Dates: start: 19850101
  5. AMLOR [Concomitant]
     Indication: HYPERTENSION
     Route: 048
     Dates: start: 20000101
  6. OLMETEC [Concomitant]
     Indication: HYPERTENSION
     Route: 048
     Dates: start: 20050101
  7. FOSAMAX [Concomitant]
     Indication: OSTEOPOROSIS
     Route: 048
     Dates: start: 20030101
  8. CALCIUM [Concomitant]
     Indication: OSTEOPOROSIS
     Route: 048
     Dates: start: 19950101
  9. VITAMIN D3 [Concomitant]
     Indication: OSTEOPOROSIS
     Dates: start: 19950101

REACTIONS (1)
  - AMYOTROPHIC LATERAL SCLEROSIS [None]
